FAERS Safety Report 4269630-4 (Version None)
Quarter: 2004Q1

REPORT INFORMATION
  Report Type: 
  Country: None (occurrence: None)
  Receive Date: 20040109
  Receipt Date: 20031229
  Transmission Date: 20041129
  Serious: Yes (Other)
  Sender: FDA-Public Use
  Company Number: 001-0073-970185

PATIENT
  Age: 20 Year
  Sex: Female

DRUGS (5)
  1. DILANTIN KAPSEALS (PHENYTOIN SODIUM) [Suspect]
     Indication: CONVULSION
     Dates: start: 19850101
  2. ESTRADIOL [Concomitant]
  3. MECLOZINE (MECLOZINE) [Concomitant]
  4. LANSOPRAZOLE [Concomitant]
  5. ACETAMINOPHEN [Concomitant]

REACTIONS (7)
  - CONDITION AGGRAVATED [None]
  - CONVULSION [None]
  - GAMMA-GLUTAMYLTRANSFERASE INCREASED [None]
  - GINGIVAL SWELLING [None]
  - RASH [None]
  - SYNCOPE [None]
  - TOOTH LOSS [None]
